FAERS Safety Report 15763812 (Version 1)
Quarter: 2018Q4

REPORT INFORMATION
  Report Type: Report from Study
  Country: US (occurrence: US)
  Receive Date: 20181227
  Receipt Date: 20181227
  Transmission Date: 20190205
  Serious: Yes (Hospitalization, Other)
  Sender: FDA-Public Use
  Company Number: US-BAYER-2018-235613

PATIENT
  Age: 79 Year
  Sex: Male

DRUGS (8)
  1. COLACE [Concomitant]
     Active Substance: DOCUSATE SODIUM
  2. AMLODIPINE BESILATE [Concomitant]
     Active Substance: AMLODIPINE BESYLATE
  3. NEXAVAR [Suspect]
     Active Substance: SORAFENIB
     Indication: HEPATOCELLULAR CARCINOMA
     Dosage: 500 MG DAILY
     Route: 048
     Dates: start: 20180417, end: 2018
  4. LISINOPRIL. [Concomitant]
     Active Substance: LISINOPRIL
  5. ULORIC [Concomitant]
     Active Substance: FEBUXOSTAT
  6. SPIRONOLACTONE. [Concomitant]
     Active Substance: SPIRONOLACTONE
  7. METOPROLOL TARTRATE. [Concomitant]
     Active Substance: METOPROLOL TARTRATE
  8. BARACLUDE [Concomitant]
     Active Substance: ENTECAVIR

REACTIONS (4)
  - Blood urine present [Unknown]
  - Hospitalisation [Recovered/Resolved]
  - Peripheral swelling [Unknown]
  - Off label use [None]
